FAERS Safety Report 15556548 (Version 2)
Quarter: 2018Q4

REPORT INFORMATION
  Report Type: Spontaneous
  Country: CA (occurrence: CA)
  Receive Date: 20181026
  Receipt Date: 20181108
  Transmission Date: 20190205
  Serious: Yes (Other)
  Sender: FDA-Public Use
  Company Number: CA-PFIZER INC-2018437157

PATIENT
  Age: 83 Year
  Sex: Female

DRUGS (22)
  1. MEPERIDINE HCL [Suspect]
     Active Substance: MEPERIDINE HYDROCHLORIDE
     Indication: OSTEOARTHRITIS
  2. MEPERIDINE HCL [Suspect]
     Active Substance: MEPERIDINE HYDROCHLORIDE
     Indication: OSTEOPENIA
     Dosage: UNK
     Route: 065
  3. APO-OXYCODONE/ACETAMINOPHEN [Suspect]
     Active Substance: ACETAMINOPHEN\OXYCODONE HYDROCHLORIDE
     Indication: OSTEOARTHRITIS
  4. ALENDRONATE SODIUM. [Concomitant]
     Active Substance: ALENDRONATE SODIUM
     Indication: OSTEOPENIA
     Dosage: UNK
     Route: 065
  5. APO-TRAMADOL [Suspect]
     Active Substance: TRAMADOL
     Indication: OSTEOPENIA
     Dosage: UNK
     Route: 065
  6. CODEINE [Suspect]
     Active Substance: CODEINE
     Indication: LUMBAR RADICULOPATHY
  7. MEPERIDINE HCL [Suspect]
     Active Substance: MEPERIDINE HYDROCHLORIDE
     Indication: LUMBAR RADICULOPATHY
  8. CODEINE [Suspect]
     Active Substance: CODEINE
     Indication: OSTEOARTHRITIS
  9. APO-TRAMADOL [Suspect]
     Active Substance: TRAMADOL
     Indication: OSTEOARTHRITIS
  10. ACETAMINOPHEN. [Concomitant]
     Active Substance: ACETAMINOPHEN
     Indication: LUMBAR RADICULOPATHY
     Dosage: UNK
     Route: 065
  11. APO-OXYCODONE/ACETAMINOPHEN [Suspect]
     Active Substance: ACETAMINOPHEN\OXYCODONE HYDROCHLORIDE
     Indication: OSTEOPENIA
     Dosage: UNK
     Route: 065
  12. ALENDRONATE SODIUM. [Concomitant]
     Active Substance: ALENDRONATE SODIUM
     Indication: OSTEOARTHRITIS
  13. HYDROCHLOROTHIAZIDE. [Concomitant]
     Active Substance: HYDROCHLOROTHIAZIDE
     Indication: HYPERTENSION
     Dosage: UNK
     Route: 065
  14. QUINAPRIL. [Concomitant]
     Active Substance: QUINAPRIL
     Indication: HYPERTENSION
     Dosage: UNK
     Route: 065
  15. CODEINE [Suspect]
     Active Substance: CODEINE
     Indication: OSTEOPENIA
     Dosage: UNK
     Route: 065
  16. APO-OXYCODONE/ACETAMINOPHEN [Suspect]
     Active Substance: ACETAMINOPHEN\OXYCODONE HYDROCHLORIDE
     Indication: LUMBAR RADICULOPATHY
  17. APO-TRAMADOL [Suspect]
     Active Substance: TRAMADOL
     Indication: LUMBAR RADICULOPATHY
  18. EPROSARTAN MESILATE/HYDROCHLOROTHIAZIDE [Concomitant]
     Indication: HYPERTENSION
     Dosage: UNK
     Route: 065
  19. AMITRIPTYLINE [Concomitant]
     Active Substance: AMITRIPTYLINE
     Dosage: UNK
     Route: 065
  20. DESIPRAMINE [Concomitant]
     Active Substance: DESIPRAMINE
     Dosage: UNK
     Route: 065
  21. LANSOPRAZOLE. [Concomitant]
     Active Substance: LANSOPRAZOLE
     Dosage: UNK
     Route: 065
  22. SIMVASTATIN. [Concomitant]
     Active Substance: SIMVASTATIN
     Indication: HYPERLIPIDAEMIA
     Dosage: UNK
     Route: 065

REACTIONS (2)
  - Drug intolerance [Unknown]
  - Drug ineffective [Unknown]
